FAERS Safety Report 12530439 (Version 2)
Quarter: 2016Q3

REPORT INFORMATION
  Report Type: Report from Study
  Country: IT (occurrence: IT)
  Receive Date: 20160706
  Receipt Date: 20160804
  Transmission Date: 20161109
  Serious: Yes (Hospitalization)
  Sender: FDA-Public Use
  Company Number: IT-ASTELLAS-2016US025084

PATIENT
  Age: 74 Year
  Sex: Female
  Weight: 61 kg

DRUGS (5)
  1. INDERAL [Concomitant]
     Active Substance: PROPRANOLOL HYDROCHLORIDE
     Indication: HYPERTENSION
     Route: 048
     Dates: start: 20160129
  2. ENZALUTAMIDE [Suspect]
     Active Substance: ENZALUTAMIDE
     Indication: HEPATOCELLULAR CARCINOMA
     Route: 065
     Dates: start: 20160505, end: 20160607
  3. LASIX [Concomitant]
     Active Substance: FUROSEMIDE
     Indication: DIURETIC THERAPY
     Route: 048
     Dates: start: 20160126
  4. LUVION                             /00252501/ [Concomitant]
     Active Substance: CANRENONE
     Indication: DIURETIC THERAPY
     Route: 048
     Dates: start: 20160126
  5. EUTIROX [Concomitant]
     Active Substance: LEVOTHYROXINE SODIUM
     Indication: HYPOPARATHYROIDISM
     Route: 048
     Dates: start: 2013

REACTIONS (1)
  - Hepatic failure [Recovered/Resolved with Sequelae]

NARRATIVE: CASE EVENT DATE: 20160606
